FAERS Safety Report 23858241 (Version 1)
Quarter: 2024Q2

REPORT INFORMATION
  Report Type: Other
  Country: US (occurrence: US)
  Receive Date: 20240515
  Receipt Date: 20240515
  Transmission Date: 20240715
  Serious: Yes (Hospitalization)
  Sender: FDA-Public Use
  Company Number: US-Prasco Laboratories-PRAS20240911

PATIENT
  Age: 59 Year
  Sex: Female

DRUGS (3)
  1. DEXAMETHASONE [Suspect]
     Active Substance: DEXAMETHASONE
     Indication: COVID-19
     Dosage: 6 MG
     Route: 048
  2. COBICISTAT [Suspect]
     Active Substance: COBICISTAT
     Indication: HIV infection
     Dosage: UNKNOWN
     Route: 065
  3. SYMTUZA [Concomitant]
     Active Substance: COBICISTAT\DARUNAVIR\EMTRICITABINE\TENOFOVIR ALAFENAMIDE
     Indication: HIV infection
     Dosage: 800-150-10 MG
     Route: 065

REACTIONS (13)
  - Mania [Recovered/Resolved]
  - Drug interaction [Recovered/Resolved]
  - Abnormal behaviour [Recovered/Resolved]
  - Euphoric mood [Recovered/Resolved]
  - Energy increased [Recovered/Resolved]
  - Poor quality sleep [Recovered/Resolved]
  - Aggression [Recovered/Resolved]
  - Affect lability [Recovered/Resolved]
  - Crying [Recovered/Resolved]
  - Sleep deficit [Recovered/Resolved]
  - Gambling disorder [Recovered/Resolved]
  - Grandiosity [Recovered/Resolved]
  - Paranoia [Recovered/Resolved]
